FAERS Safety Report 7637426-9 (Version None)
Quarter: 2011Q3

REPORT INFORMATION
  Report Type: 
  Country: None (occurrence: None)
  Receive Date: 20110726
  Receipt Date: 20110721
  Transmission Date: 20111222
  Serious: Yes (Other)
  Sender: FDA-Public Use
  Company Number: US-PFIZER INC-2011166818

PATIENT
  Sex: Male

DRUGS (3)
  1. PLAVIX [Concomitant]
     Dosage: UNK
  2. ACETYLSALICYLIC ACID [Concomitant]
     Dosage: UNK MG, UNK
  3. NEURONTIN [Suspect]
     Dosage: 100 MG, 3X/DAY

REACTIONS (1)
  - BLOOD URINE PRESENT [None]
